FAERS Safety Report 20244946 (Version 1)
Quarter: 2021Q4

REPORT INFORMATION
  Report Type: Spontaneous
  Country: GB (occurrence: GB)
  Receive Date: 20211229
  Receipt Date: 20211229
  Transmission Date: 20220304
  Serious: Yes (Hospitalization, Other)
  Sender: FDA-Public Use
  Company Number: GB-SA-SAC20211223000971

PATIENT

DRUGS (1)
  1. PRALUENT [Suspect]
     Active Substance: ALIROCUMAB
     Indication: Cardiovascular disorder
     Dosage: 150 MG, QOW
     Route: 058

REACTIONS (2)
  - Myocardial infarction [Unknown]
  - Malaise [Unknown]
